FAERS Safety Report 6579956-7 (Version None)
Quarter: 2010Q1

REPORT INFORMATION
  Report Type: 
  Country: None (occurrence: None)
  Receive Date: 20100212
  Receipt Date: 20100208
  Transmission Date: 20100710
  Serious: Yes (Other)
  Sender: FDA-Public Use
  Company Number: US-PFIZER INC-2010017649

PATIENT
  Sex: Female
  Weight: 68.038 kg

DRUGS (2)
  1. CHANTIX [Suspect]
     Indication: SMOKING CESSATION THERAPY
     Dosage: 0.5 MG, 1X/DAY
     Route: 048
     Dates: start: 20071001, end: 20071101
  2. ESTROGENS CONJUGATED [Concomitant]

REACTIONS (1)
  - SKIN EXFOLIATION [None]
